FAERS Safety Report 8269367-0 (Version None)
Quarter: 2012Q2

REPORT INFORMATION
  Report Type: 
  Country: None (occurrence: None)
  Receive Date: 20120409
  Receipt Date: 20120402
  Transmission Date: 20120825
  Serious: Yes (Other)
  Sender: FDA-Public Use
  Company Number: US-ROCHE-1021093

PATIENT

DRUGS (6)
  1. VORINOSTAT [Suspect]
     Indication: LYMPHOMA
  2. MABTHERA [Suspect]
     Indication: LYMPHOMA
  3. MABTHERA [Suspect]
     Indication: LEUKAEMIA
  4. CLADRIBINE [Suspect]
     Indication: LEUKAEMIA
  5. CLADRIBINE [Suspect]
     Indication: LYMPHOMA
  6. VORINOSTAT [Suspect]
     Indication: LEUKAEMIA

REACTIONS (3)
  - PULMONARY HAEMORRHAGE [None]
  - THROMBOCYTOPENIA [None]
  - EMBOLISM [None]
